FAERS Safety Report 4993339-2 (Version None)
Quarter: 2006Q2

REPORT INFORMATION
  Report Type: 
  Country: None (occurrence: None)
  Receive Date: 20060505
  Receipt Date: 20060426
  Transmission Date: 20061013
  Serious: Yes (Other)
  Sender: FDA-Public Use
  Company Number: 2006UW07797

PATIENT
  Sex: Female

DRUGS (1)
  1. TAMOXIFEN CITRATE [Suspect]
     Indication: BREAST CANCER FEMALE
     Route: 048

REACTIONS (12)
  - ARTHROPATHY [None]
  - ASTHENIA [None]
  - BLADDER REPAIR [None]
  - CATARACT OPERATION [None]
  - GANGLION [None]
  - HYSTERECTOMY [None]
  - NASOPHARYNGEAL SURGERY [None]
  - NEPHROLITHIASIS [None]
  - PANIC ATTACK [None]
  - SKIN ATROPHY [None]
  - TOOTH DISORDER [None]
  - WEIGHT INCREASED [None]
